FAERS Safety Report 14628667 (Version 2)
Quarter: 2020Q1

REPORT INFORMATION
  Report Type: Spontaneous
  Country: US (occurrence: US)
  Receive Date: 20180313
  Receipt Date: 20200213
  Transmission Date: 20200409
  Serious: Yes (Hospitalization, Other)
  Sender: FDA-Public Use
  Company Number: US-ASTRAZENECA-2018SE28516

PATIENT
  Age: 35 Year
  Sex: Male
  Weight: 124.3 kg

DRUGS (52)
  1. NEXIUM [Suspect]
     Active Substance: ESOMEPRAZOLE MAGNESIUM
     Indication: GASTROOESOPHAGEAL REFLUX DISEASE
     Route: 048
     Dates: start: 201412, end: 201505
  2. LISINOPRIL. [Concomitant]
     Active Substance: LISINOPRIL
     Indication: HYPERTENSION
  3. DICYCLOMINE [Concomitant]
     Active Substance: DICYCLOMINE HYDROCHLORIDE
  4. LIDOCAINE. [Concomitant]
     Active Substance: LIDOCAINE
  5. PHENOBARBITAL. [Concomitant]
     Active Substance: PHENOBARBITAL
  6. SULINDAC. [Concomitant]
     Active Substance: SULINDAC
  7. TOBRADEX [Concomitant]
     Active Substance: DEXAMETHASONE\TOBRAMYCIN
  8. ANORO ELLIPTA [Concomitant]
     Active Substance: UMECLIDINIUM BROMIDE\VILANTEROL TRIFENATATE
  9. TRADJENTA [Concomitant]
     Active Substance: LINAGLIPTIN
  10. NAPROXEN. [Concomitant]
     Active Substance: NAPROXEN
     Indication: PAIN
  11. TOPIRAMATE. [Concomitant]
     Active Substance: TOPIRAMATE
  12. HYDROGEN PEROXIDE. [Concomitant]
     Active Substance: HYDROGEN PEROXIDE
  13. CAPSAICIN. [Concomitant]
     Active Substance: CAPSAICIN
  14. MINOCYCLINE [Concomitant]
     Active Substance: MINOCYCLINE HYDROCHLORIDE
  15. NEXIUM [Suspect]
     Active Substance: ESOMEPRAZOLE MAGNESIUM
     Indication: GASTROOESOPHAGEAL REFLUX DISEASE
     Route: 048
     Dates: start: 2016
  16. HYDROCHLOROTHIAZIDE. [Concomitant]
     Active Substance: HYDROCHLOROTHIAZIDE
     Indication: OEDEMA
  17. TRAMADOL. [Concomitant]
     Active Substance: TRAMADOL
     Indication: PAIN
  18. PERCOCET [Concomitant]
     Active Substance: ACETAMINOPHEN\OXYCODONE HYDROCHLORIDE
  19. NOVOLOG [Concomitant]
     Active Substance: INSULIN ASPART
  20. SEROQUEL XR [Concomitant]
     Active Substance: QUETIAPINE FUMARATE
  21. DIPHENHYDRAMINE. [Concomitant]
     Active Substance: DIPHENHYDRAMINE
  22. DARVOCET [Concomitant]
     Active Substance: ACETAMINOPHEN\PROPOXYPHENE HYDROCHLORIDE
  23. TOUJEO [Concomitant]
     Active Substance: INSULIN GLARGINE
  24. NEXIUM [Suspect]
     Active Substance: ESOMEPRAZOLE MAGNESIUM
     Indication: GASTROOESOPHAGEAL REFLUX DISEASE
     Dosage: GENERIC
     Route: 065
  25. ZOLOFT [Concomitant]
     Active Substance: SERTRALINE HYDROCHLORIDE
  26. NEURONTIN [Concomitant]
     Active Substance: GABAPENTIN
  27. AMOXICILLIN. [Concomitant]
     Active Substance: AMOXICILLIN
  28. VALPROATE [Concomitant]
     Active Substance: VALPROIC ACID
  29. NEXIUM [Suspect]
     Active Substance: ESOMEPRAZOLE MAGNESIUM
     Indication: GASTROOESOPHAGEAL REFLUX DISEASE
     Route: 048
     Dates: start: 20140609, end: 20170206
  30. TESTIM [Concomitant]
     Active Substance: TESTOSTERONE
  31. ONDANSETRON [Concomitant]
     Active Substance: ONDANSETRON
  32. PANTOPRAZOLE [Concomitant]
     Active Substance: PANTOPRAZOLE
  33. FLUTICASONE. [Concomitant]
     Active Substance: FLUTICASONE
  34. BENZONATATE. [Concomitant]
     Active Substance: BENZONATATE
  35. ACETAMINOPHEN. [Concomitant]
     Active Substance: ACETAMINOPHEN
  36. EUCERIN [Concomitant]
     Active Substance: ENSULIZOLE\EUCERIN\OCTINOXATE\OCTISALATE\TITANIUM DIOXIDE\ZINC OXIDE
  37. ZOFRAN [Concomitant]
     Active Substance: ONDANSETRON HYDROCHLORIDE
  38. ADVAIR DISKUS [Concomitant]
     Active Substance: FLUTICASONE PROPIONATE\SALMETEROL XINAFOATE
  39. CYPIONATE [Concomitant]
     Active Substance: ESTRADIOL CYPIONATE
  40. CEFTRIAXONE. [Concomitant]
     Active Substance: CEFTRIAXONE
  41. SUMATRIPTAN. [Concomitant]
     Active Substance: SUMATRIPTAN
  42. SODIUM CHLORIDE. [Concomitant]
     Active Substance: SODIUM CHLORIDE
  43. MOMETASONE [Concomitant]
     Active Substance: MOMETASONE
  44. BENZAC [Concomitant]
     Active Substance: SALICYLIC ACID
  45. BENZTROPINE. [Concomitant]
     Active Substance: BENZTROPINE
  46. ALBUTEROL. [Concomitant]
     Active Substance: ALBUTEROL
  47. PALIPERIDONE. [Concomitant]
     Active Substance: PALIPERIDONE
  48. JANUVIA [Concomitant]
     Active Substance: SITAGLIPTIN PHOSPHATE
  49. NORCO [Concomitant]
     Active Substance: ACETAMINOPHEN\HYDROCODONE BITARTRATE
  50. RIOMET [Concomitant]
     Active Substance: METFORMIN HYDROCHLORIDE
  51. KETOROLAC [Concomitant]
     Active Substance: KETOROLAC TROMETHAMINE
  52. VANCOMYCIN [Concomitant]
     Active Substance: VANCOMYCIN

REACTIONS (3)
  - Chronic kidney disease [Not Recovered/Not Resolved]
  - Acute kidney injury [Not Recovered/Not Resolved]
  - Renal failure [Unknown]

NARRATIVE: CASE EVENT DATE: 2013
